FAERS Safety Report 5324988-X (Version None)
Quarter: 2007Q2

REPORT INFORMATION
  Report Type: 
  Country: None (occurrence: None)
  Receive Date: 20070515
  Receipt Date: 20070509
  Transmission Date: 20071010
  Serious: Yes (Life-Threatening, Hospitalization)
  Sender: FDA-Public Use
  Company Number: ES-BAYER-200712604GDS

PATIENT
  Age: 84 Year
  Sex: Female

DRUGS (2)
  1. BAYCIP [Suspect]
     Indication: RESPIRATORY DISORDER
     Dosage: UNIT DOSE: 0.5 G
     Route: 048
     Dates: start: 20060313, end: 20060323
  2. MONOCID [Suspect]
     Indication: RESPIRATORY DISORDER
     Route: 042
     Dates: start: 20060311, end: 20060323

REACTIONS (1)
  - GASTROINTESTINAL DISORDER [None]
